FAERS Safety Report 6706741-5 (Version None)
Quarter: 2010Q2

REPORT INFORMATION
  Report Type: 
  Country: None (occurrence: None)
  Receive Date: 20100503
  Receipt Date: 20100421
  Transmission Date: 20101027
  Serious: Yes (Other)
  Sender: FDA-Public Use
  Company Number: US-PFIZER INC-2010051198

PATIENT
  Sex: Female
  Weight: 65.76 kg

DRUGS (4)
  1. NEURONTIN [Suspect]
     Indication: NEURALGIA
     Dosage: 300 MG, 3X/DAY
     Dates: start: 19950101, end: 20080101
  2. NEURONTIN [Suspect]
     Indication: CHOLECYSTITIS
     Dosage: 400 MG, 3X/DAY
     Dates: start: 20080101
  3. LEVAQUIN [Concomitant]
  4. MORPHINE [Concomitant]
     Indication: BACK INJURY
     Dosage: UNK

REACTIONS (5)
  - DEEP VEIN THROMBOSIS [None]
  - DRUG INEFFECTIVE [None]
  - OEDEMA PERIPHERAL [None]
  - PULMONARY EMBOLISM [None]
  - THROMBOSIS [None]
